FAERS Safety Report 20368968 (Version 2)
Quarter: 2023Q4

REPORT INFORMATION
  Report Type: Spontaneous
  Country: US (occurrence: US)
  Receive Date: 20220124
  Receipt Date: 20231206
  Transmission Date: 20240110
  Serious: Yes (Other)
  Sender: FDA-Public Use
  Company Number: US-RISINGPHARMA-US-2022RISLIT00034

PATIENT

DRUGS (4)
  1. CYTARABINE [Suspect]
     Active Substance: CYTARABINE
     Indication: B-cell type acute leukaemia
     Route: 042
  2. CYTARABINE [Suspect]
     Active Substance: CYTARABINE
     Route: 037
  3. METHOTREXATE [Concomitant]
     Active Substance: METHOTREXATE
     Route: 037
  4. HYDROCORTISONE [Concomitant]
     Active Substance: HYDROCORTISONE
     Route: 037

REACTIONS (2)
  - Myelopathy [Unknown]
  - Toxicity to various agents [Unknown]
